FAERS Safety Report 6113984-0 (Version None)
Quarter: 2009Q1

REPORT INFORMATION
  Report Type: 
  Country: None (occurrence: None)
  Receive Date: 20090312
  Receipt Date: 20090122
  Transmission Date: 20090719
  Serious: No
  Sender: FDA-Public Use
  Company Number: US-ABBOTT-09P-163-0499310-00

PATIENT
  Sex: Female
  Weight: 81.266 kg

DRUGS (3)
  1. LUPRON DEPOT [Suspect]
     Indication: PELVIC PAIN
     Route: 030
     Dates: start: 20081001, end: 20090102
  2. LUPRON DEPOT [Suspect]
     Indication: ENDOMETRIOSIS
  3. VITAMIN TAB [Concomitant]
     Indication: PREGNANCY
     Route: 048
     Dates: start: 20090102

REACTIONS (6)
  - DIARRHOEA [None]
  - FATIGUE [None]
  - NAUSEA [None]
  - OVARIAN CYST [None]
  - PREGNANCY [None]
  - VOMITING [None]
